FAERS Safety Report 9543588 (Version 2)
Quarter: 2015Q2

REPORT INFORMATION
  Report Type: Spontaneous
  Country: US (occurrence: None)
  Receive Date: 20130524
  Receipt Date: 20150428
  Transmission Date: 20150821
  Serious: Yes (Other)
  Sender: FDA-Public Use
  Company Number: PHEH2012US025135

PATIENT
  Age: 59 Year
  Sex: Female
  Weight: 75.7 kg

DRUGS (5)
  1. DETROL LA [Concomitant]
     Active Substance: TOLTERODINE TARTRATE
  2. NUVIGIL [Concomitant]
     Active Substance: ARMODAFINIL
  3. GILENYA [Suspect]
     Active Substance: FINGOLIMOD HYDROCHLORIDE
     Indication: RELAPSING-REMITTING MULTIPLE SCLEROSIS
     Route: 048
     Dates: start: 20121114, end: 20121219
  4. IMITREX [Concomitant]
     Active Substance: SUMATRIPTAN\SUMATRIPTAN SUCCINATE
  5. ACTONEL (RISEDRONATE SODIUM) [Concomitant]

REACTIONS (3)
  - Pain [None]
  - Herpes zoster [None]
  - Rash [None]

NARRATIVE: CASE EVENT DATE: 20121215
